APPROVED DRUG PRODUCT: ROFLUMILAST
Active Ingredient: ROFLUMILAST
Strength: 500MCG
Dosage Form/Route: TABLET;ORAL
Application: A208180 | Product #001 | TE Code: AB
Applicant: MICRO LABS LTD
Approved: Mar 22, 2019 | RLD: No | RS: No | Type: RX